FAERS Safety Report 6533288-1 (Version None)
Quarter: 2010Q1

REPORT INFORMATION
  Report Type: 
  Country: None (occurrence: None)
  Receive Date: 20100111
  Receipt Date: 20100106
  Transmission Date: 20100710
  Serious: Yes (Other)
  Sender: FDA-Public Use
  Company Number: US-MERCK-0908USA03737

PATIENT
  Age: 74 Year
  Sex: Female
  Weight: 87 kg

DRUGS (3)
  1. FOSAMAX [Suspect]
     Indication: OSTEOPENIA
     Route: 048
     Dates: start: 20030501, end: 20090514
  2. FOSAMAX [Suspect]
     Indication: OSTEOPOROSIS
     Route: 048
     Dates: start: 20030501, end: 20090514
  3. COMBIVENT [Concomitant]
     Indication: CHRONIC OBSTRUCTIVE PULMONARY DISEASE
     Route: 055
     Dates: start: 19990101

REACTIONS (8)
  - ARTHROPATHY [None]
  - CATARACT [None]
  - DEVICE FAILURE [None]
  - IMPLANT SITE INFECTION [None]
  - ORAL INFECTION [None]
  - OSTEOMYELITIS [None]
  - OSTEONECROSIS [None]
  - UTERINE STENOSIS [None]
